FAERS Safety Report 5818430-X (Version None)
Quarter: 2008Q3

REPORT INFORMATION
  Report Type: 
  Country: None (occurrence: None)
  Receive Date: 20080716
  Receipt Date: 20080701
  Transmission Date: 20090109
  Serious: Yes (Other)
  Sender: FDA-Public Use
  Company Number: 8034160

PATIENT
  Age: 48 Year
  Sex: Male

DRUGS (3)
  1. KEPPRA [Suspect]
     Indication: EPILEPSY
     Dosage: 750 MG/D; PO
     Route: 048
  2. TEGRETOL [Concomitant]
  3. LAMICTAL [Concomitant]

REACTIONS (4)
  - DEPRESSION [None]
  - LIBIDO INCREASED [None]
  - PERSONALITY DISORDER [None]
  - SUICIDAL IDEATION [None]
